FAERS Safety Report 8203770-X (Version None)
Quarter: 2012Q1

REPORT INFORMATION
  Report Type: 
  Country: None (occurrence: None)
  Receive Date: 20120308
  Receipt Date: 20120301
  Transmission Date: 20120608
  Serious: Yes (Hospitalization, Other)
  Sender: FDA-Public Use
  Company Number: 2010SP028437

PATIENT
  Age: 20 Year
  Sex: Female
  Weight: 99.7913 kg

DRUGS (2)
  1. NUVARING [Suspect]
     Indication: CONTRACEPTION
     Dates: start: 20030101, end: 20061101
  2. NUVARING [Suspect]
     Indication: VAGINAL HAEMORRHAGE
     Dates: start: 20030101, end: 20061101

REACTIONS (32)
  - MALAISE [None]
  - ESCHERICHIA TEST POSITIVE [None]
  - PARAESTHESIA [None]
  - PURULENT DISCHARGE [None]
  - ARTHRALGIA [None]
  - FUNGAL SKIN INFECTION [None]
  - CHLAMYDIA TEST POSITIVE [None]
  - CONTUSION [None]
  - HAEMORRHAGIC CYST [None]
  - HYPEREMESIS GRAVIDARUM [None]
  - UPPER RESPIRATORY TRACT INFECTION [None]
  - CYSTITIS [None]
  - ROAD TRAFFIC ACCIDENT [None]
  - BLIGHTED OVUM [None]
  - VAGINAL INFECTION [None]
  - MATERNAL EXPOSURE DURING PREGNANCY [None]
  - LOSS OF EMPLOYMENT [None]
  - HYPOKALAEMIA [None]
  - IMPAIRED HEALING [None]
  - MUSCULOSKELETAL PAIN [None]
  - ABORTION SPONTANEOUS [None]
  - COUGH [None]
  - VAGINAL HAEMORRHAGE [None]
  - HYPOAESTHESIA [None]
  - INCISION SITE COMPLICATION [None]
  - URINARY TRACT INFECTION [None]
  - PULMONARY EMBOLISM [None]
  - PREGNANCY WITH CONTRACEPTIVE DEVICE [None]
  - ASTHENIA [None]
  - ACNE [None]
  - PLEURITIC PAIN [None]
  - CERVICAL DYSPLASIA [None]
